FAERS Safety Report 4284511-8 (Version None)
Quarter: 2004Q1

REPORT INFORMATION
  Report Type: 
  Country: None (occurrence: None)
  Receive Date: 20040130
  Receipt Date: 20040122
  Transmission Date: 20041129
  Serious: Yes (Other)
  Sender: FDA-Public Use
  Company Number: 2003189347GB

PATIENT
  Age: 34 Year
  Sex: Female

DRUGS (1)
  1. DALACIN C (CLINDAMYCIN) [Suspect]
     Indication: TOXOPLASMOSIS
     Dosage: 300 MG, QID, ORAL
     Route: 048

REACTIONS (1)
  - SICKLE CELL ANAEMIA WITH CRISIS [None]
